FAERS Safety Report 23636534 (Version 1)
Quarter: 2024Q1

REPORT INFORMATION
  Report Type: Spontaneous
  Country: US (occurrence: US)
  Receive Date: 20240315
  Receipt Date: 20240315
  Transmission Date: 20240410
  Serious: Yes (Other)
  Sender: FDA-Public Use
  Company Number: US-SUN PHARMACEUTICAL INDUSTRIES LTD-2024R1-436196

PATIENT
  Age: 69 Year
  Sex: Female

DRUGS (1)
  1. PREDNISONE [Suspect]
     Active Substance: PREDNISONE
     Indication: Immune thrombocytopenia
     Dosage: 80 MILLIGRAM, DAILY
     Route: 065

REACTIONS (4)
  - Disease recurrence [Unknown]
  - Condition aggravated [Unknown]
  - Toxicity to various agents [Unknown]
  - Hyperglycaemia [Unknown]
